FAERS Safety Report 4803372-9 (Version None)
Quarter: 2005Q4

REPORT INFORMATION
  Report Type: 
  Country: None (occurrence: None)
  Receive Date: 20051014
  Receipt Date: 20051006
  Transmission Date: 20060501
  Serious: Yes (Other)
  Sender: FDA-Public Use
  Company Number: HQWYE927607OCT05

PATIENT
  Age: 16 Year
  Sex: Female

DRUGS (3)
  1. CORDARONE [Suspect]
     Indication: VENTRICULAR TACHYCARDIA
     Dosage: 10 MG, INTRAVENOUS
     Route: 042
     Dates: start: 20050927, end: 20050927
  2. BETALOC           (METROPROLO TARTRATE) [Concomitant]
  3. LIDOCAINE HCL INJ [Concomitant]

REACTIONS (9)
  - ABDOMINAL PAIN [None]
  - AGITATION [None]
  - BLOOD PRESSURE DECREASED [None]
  - COUGH [None]
  - DRUG HYPERSENSITIVITY [None]
  - DYSPNOEA [None]
  - ERYTHEMA [None]
  - HYPERHIDROSIS [None]
  - MUSCULOSKELETAL STIFFNESS [None]
